FAERS Safety Report 10510098 (Version 1)
Quarter: 2014Q4

REPORT INFORMATION
  Report Type: Spontaneous
  Country: US (occurrence: None)
  Receive Date: 20141009
  Receipt Date: 20141009
  Transmission Date: 20150528
  Serious: Yes (Hospitalization)
  Sender: FDA-Public Use
  Company Number: None

PATIENT
  Age: 26 Year
  Sex: Male

DRUGS (2)
  1. IODIXANOL [Suspect]
     Active Substance: IODIXANOL
     Indication: IMAGING PROCEDURE
     Route: 042
     Dates: start: 20130731, end: 20130731
  2. IODIXANOL [Suspect]
     Active Substance: IODIXANOL
     Indication: INJURY
     Route: 042
     Dates: start: 20130731, end: 20130731

REACTIONS (2)
  - Anaphylactic reaction [None]
  - Contrast media allergy [None]

NARRATIVE: CASE EVENT DATE: 20130731
